FAERS Safety Report 5948081-8 (Version None)
Quarter: 2008Q4

REPORT INFORMATION
  Report Type: 
  Country: None (occurrence: None)
  Receive Date: 20081107
  Receipt Date: 20081029
  Transmission Date: 20090506
  Serious: No
  Sender: FDA-Public Use
  Company Number: 2008-178977-NL

PATIENT
  Age: 36 Year
  Sex: Female

DRUGS (8)
  1. ETONOGESTREL (BATCH #: 761023/744858) [Suspect]
     Dosage: DF
     Dates: start: 20051024, end: 20080616
  2. CARBAMAZEPINE [Suspect]
     Indication: EPILEPSY
     Dosage: 200 MG BID
     Dates: start: 20071105
  3. TOPIRAMATE [Suspect]
     Dosage: 50 MG BID
  4. TRAMADOL HYDROCHLORIDE [Concomitant]
  5. LAMOTRIGINE [Concomitant]
  6. COVERSYL PLUS [Concomitant]
  7. CLONAZEPAM [Concomitant]
  8. LABETALOL HCL [Concomitant]

REACTIONS (4)
  - CAESAREAN SECTION [None]
  - DRUG EXPOSURE DURING PREGNANCY [None]
  - EPILEPSY [None]
  - PREGNANCY WITH IMPLANT CONTRACEPTIVE [None]
